FAERS Safety Report 4284640-9 (Version None)
Quarter: 2004Q1

REPORT INFORMATION
  Report Type: 
  Country: None (occurrence: None)
  Receive Date: 20040202
  Receipt Date: 20040202
  Transmission Date: 20041129
  Serious: Yes (Death)
  Sender: FDA-Public Use
  Company Number: None

PATIENT
  Sex: Female
  Weight: 81.6475 kg

DRUGS (2)
  1. PEG-INTRON [Suspect]
     Indication: HEPATITIS C
     Dosage: EVERY WEEK SQ
     Route: 058
     Dates: start: 20030123, end: 20031010
  2. RIBAVARIN RIBARIN 800 MG [Suspect]
     Indication: HEPATITIS C
     Dosage: DAILY ORAL
     Route: 048
     Dates: start: 20030123, end: 20031010

REACTIONS (5)
  - CELLULITIS [None]
  - CEREBROVASCULAR ACCIDENT [None]
  - DEPRESSED LEVEL OF CONSCIOUSNESS [None]
  - FACIAL PALSY [None]
  - HYPERCOAGULATION [None]
